FAERS Safety Report 19965993 (Version 5)
Quarter: 2021Q4

REPORT INFORMATION
  Report Type: Spontaneous
  Country: ES (occurrence: ES)
  Receive Date: 20211018
  Receipt Date: 20211227
  Transmission Date: 20220303
  Serious: Yes (Other)
  Sender: FDA-Public Use
  Company Number: ES-ALXN-A202111404

PATIENT
  Age: 7 Year
  Sex: Male
  Weight: 27.4 kg

DRUGS (1)
  1. SOLIRIS [Suspect]
     Active Substance: ECULIZUMAB
     Indication: Atypical haemolytic uraemic syndrome
     Dosage: 600 MG, UNK
     Route: 065

REACTIONS (2)
  - Intestinal perforation [Unknown]
  - Headache [Unknown]

NARRATIVE: CASE EVENT DATE: 20211007
